FAERS Safety Report 7201872-8 (Version None)
Quarter: 2010Q4

REPORT INFORMATION
  Report Type: 
  Country: None (occurrence: None)
  Receive Date: 20101229
  Receipt Date: 20101220
  Transmission Date: 20110411
  Serious: Yes (Other)
  Sender: FDA-Public Use
  Company Number: HR-ASTRAZENECA-2010SE60249

PATIENT
  Age: 74 Year
  Sex: Male

DRUGS (16)
  1. ATACAND HCT [Suspect]
     Dosage: 12 MG /16 MG DAILY
     Route: 048
     Dates: start: 20080101, end: 20101108
  2. AUGMENTIN '875' [Interacting]
     Indication: PNEUMONIA
     Route: 048
     Dates: start: 20101022
  3. MARTEFARIN [Interacting]
     Dates: start: 20101025, end: 20101108
  4. CORDARONE [Interacting]
     Indication: ATRIAL FIBRILLATION
     Route: 048
     Dates: start: 20101022, end: 20101103
  5. CORDARONE [Interacting]
     Route: 048
     Dates: start: 20101103, end: 20101108
  6. NOVOCEF [Interacting]
     Indication: PNEUMONIA
     Route: 048
     Dates: start: 20101030, end: 20101108
  7. AZITHROMYCIN [Interacting]
     Indication: PNEUMONIA
     Dates: start: 20101022
  8. CONCOR [Interacting]
     Indication: HYPERTENSION
     Route: 048
     Dates: start: 20010101
  9. ASPIRIN [Interacting]
     Indication: ATRIAL FIBRILLATION
     Route: 048
     Dates: start: 20050101, end: 20101108
  10. ALLOPURINOL [Interacting]
     Indication: GOUT
     Route: 048
  11. FURSEMID [Suspect]
     Indication: RENAL FAILURE CHRONIC
     Route: 048
     Dates: start: 20070101, end: 20101108
  12. NORVASC [Concomitant]
     Indication: HYPERTENSION
     Route: 048
  13. NOVOMIX [Concomitant]
     Indication: DIABETES MELLITUS
     Dosage: 15+10 IU PER DAY
     Route: 058
     Dates: start: 20101025
  14. NOVOMIX [Concomitant]
     Route: 058
     Dates: start: 20101025
  15. PHYSIOTENS [Concomitant]
     Indication: HYPERTENSION
     Route: 048
     Dates: start: 20080101
  16. CLEXANE [Concomitant]
     Indication: ATRIAL FIBRILLATION
     Route: 042
     Dates: start: 20101020, end: 20101108

REACTIONS (6)
  - BLOOD CREATININE INCREASED [None]
  - DRUG INTERACTION [None]
  - LEUKOPENIA [None]
  - OLIGURIA [None]
  - PNEUMONIA [None]
  - PROTHROMBIN TIME SHORTENED [None]
